FAERS Safety Report 12649487 (Version 1)
Quarter: 2016Q3

REPORT INFORMATION
  Report Type: Report from Study
  Country: ES (occurrence: ES)
  Receive Date: 20160812
  Receipt Date: 20160812
  Transmission Date: 20161109
  Serious: Yes (Hospitalization)
  Sender: FDA-Public Use
  Company Number: ES-009507513-1608ESP004615

PATIENT
  Age: 56 Year
  Sex: Female

DRUGS (6)
  1. IRON (UNSPECIFIED) [Concomitant]
     Active Substance: IRON
     Dosage: 100 MG, UNK
     Route: 048
     Dates: start: 20150226
  2. MEROPENEM. [Concomitant]
     Active Substance: MEROPENEM
     Indication: POST PROCEDURAL INFECTION
     Dosage: 1GR/8H
     Route: 048
     Dates: start: 20150224
  3. CANCIDAS [Suspect]
     Active Substance: CASPOFUNGIN ACETATE
     Indication: POST PROCEDURAL INFECTION
     Dosage: 70MG LOADING DOSE FOLLOWED BY 50MG
     Route: 042
     Dates: start: 20150224, end: 20150302
  4. ALLOPURINOL. [Concomitant]
     Active Substance: ALLOPURINOL
     Indication: HYPERURICAEMIA
     Dosage: 1CP
     Route: 048
     Dates: start: 2010
  5. DAPTOMYCIN. [Concomitant]
     Active Substance: DAPTOMYCIN
     Indication: POST PROCEDURAL INFECTION
     Dosage: 500 MG, UNK
     Route: 042
     Dates: start: 20150220
  6. ESOMEPRAZOLE [Concomitant]
     Active Substance: ESOMEPRAZOLE
     Indication: PROPHYLAXIS AGAINST GASTROINTESTINAL ULCER
     Dosage: 1 CP SNG
     Route: 048
     Dates: start: 20160208

REACTIONS (1)
  - Eosinophilia [Recovered/Resolved]

NARRATIVE: CASE EVENT DATE: 20150227
